FAERS Safety Report 7254088-3 (Version None)
Quarter: 2011Q1

REPORT INFORMATION
  Report Type: 
  Country: None (occurrence: None)
  Receive Date: 20110129
  Receipt Date: 20100429
  Transmission Date: 20110831
  Serious: Yes (Hospitalization)
  Sender: FDA-Public Use
  Company Number: US-ABBOTT-10P-163-0640272-00

PATIENT
  Sex: Female
  Weight: 44.038 kg

DRUGS (13)
  1. HUMIRA [Suspect]
     Indication: CROHN'S DISEASE
     Route: 058
     Dates: start: 20091101
  2. UNKNOWN MEDICATION [Concomitant]
     Indication: CROHN'S DISEASE
     Dates: end: 20100101
  3. HUMIRA [Suspect]
     Route: 058
  4. ANTIBIOTICS [Concomitant]
     Indication: PROPHYLAXIS
     Route: 042
     Dates: start: 20100101
  5. UNKNOWN ORAL MEDICATIONS [Concomitant]
     Indication: PROCEDURAL PAIN
     Route: 048
     Dates: start: 20100101
  6. ANTIBIOTIC [Concomitant]
  7. HUMIRA [Suspect]
     Route: 058
  8. ANTIBIOTIC [Concomitant]
     Indication: POST PROCEDURAL INFECTION
     Dates: start: 20100101
  9. TPN ELECTROLYTES IN PLASTIC CONTAINER [Concomitant]
     Indication: PARENTERAL NUTRITION
     Dates: start: 20100101
  10. MULTI-VITAMINS [Concomitant]
     Indication: VITAMIN SUPPLEMENTATION
  11. ANTIBIOTICS [Concomitant]
  12. UNKNOWN INTRAVENOUS MEDICATIONS [Concomitant]
     Indication: PROCEDURAL PAIN
     Route: 042
     Dates: start: 20100101
  13. PREDNISONE [Concomitant]
     Indication: CROHN'S DISEASE
     Dosage: VARIED DEPENDING ON SYMPTOMS
     Route: 048
     Dates: start: 20100101

REACTIONS (3)
  - SURGERY [None]
  - ABDOMINAL PAIN [None]
  - CROHN'S DISEASE [None]
